FAERS Safety Report 5475519-5 (Version None)
Quarter: 2007Q3

REPORT INFORMATION
  Report Type: 
  Country: None (occurrence: None)
  Receive Date: 20070914
  Receipt Date: 20070823
  Transmission Date: 20080115
  Serious: Yes (Other)
  Sender: FDA-Public Use
  Company Number: WWISSUE-99

PATIENT
  Sex: Male

DRUGS (1)
  1. DERIFIL TABLETS/100 MG/INTEGRA LIFSCIENCES CORP. [Suspect]

REACTIONS (1)
  - DIARRHOEA [None]
